FAERS Safety Report 22127534 (Version 2)
Quarter: 2023Q1

REPORT INFORMATION
  Report Type: Report from Study
  Country: US (occurrence: US)
  Receive Date: 20230323
  Receipt Date: 20230330
  Transmission Date: 20230417
  Serious: Yes (Hospitalization)
  Sender: FDA-Public Use
  Company Number: US-ABBVIE-4698693

PATIENT
  Age: 77 Year
  Sex: Male

DRUGS (2)
  1. DUOPA [Suspect]
     Active Substance: CARBIDOPA\LEVODOPA
     Indication: Product used for unknown indication
     Route: 050
     Dates: start: 20220411
  2. DUOPA [Suspect]
     Active Substance: CARBIDOPA\LEVODOPA

REACTIONS (6)
  - Rehabilitation therapy [Recovered/Resolved]
  - Sleep terror [Unknown]
  - Kidney infection [Unknown]
  - Affect lability [Not Recovered/Not Resolved]
  - Hallucination [Unknown]
  - Anger [Unknown]

NARRATIVE: CASE EVENT DATE: 20230301
